FAERS Safety Report 22052336 (Version 5)
Quarter: 2024Q1

REPORT INFORMATION
  Report Type: Report from Study
  Country: CO (occurrence: CO)
  Receive Date: 20230302
  Receipt Date: 20240321
  Transmission Date: 20240410
  Serious: Yes (Hospitalization, Other)
  Sender: FDA-Public Use
  Company Number: CO-AMGEN-COLSL2023035232

PATIENT
  Age: 67 Year
  Sex: Male

DRUGS (5)
  1. VECTIBIX [Suspect]
     Active Substance: PANITUMUMAB
     Indication: Colorectal cancer metastatic
     Dosage: 543 MILLIGRAM, Q2WK
     Route: 065
     Dates: start: 20230123
  2. VECTIBIX [Suspect]
     Active Substance: PANITUMUMAB
     Dosage: 534 MILLIGRAM, Q2WK
     Route: 065
  3. VECTIBIX [Suspect]
     Active Substance: PANITUMUMAB
     Dosage: 534 MILLIGRAM, QMO
     Route: 065
     Dates: start: 2023
  4. VECTIBIX [Suspect]
     Active Substance: PANITUMUMAB
     Dosage: 534 MILLIGRAM, EVERY 21 DAYS
     Route: 065
     Dates: start: 2023
  5. VECTIBIX [Suspect]
     Active Substance: PANITUMUMAB
     Dosage: 534 MILLIGRAM, Q2WK (BIWEEKLY)
     Route: 065
     Dates: end: 20240129

REACTIONS (4)
  - Chest pain [Recovered/Resolved]
  - Pain in extremity [Recovered/Resolved]
  - Complication associated with device [Not Recovered/Not Resolved]
  - Off label use [Unknown]

NARRATIVE: CASE EVENT DATE: 20230101
